FAERS Safety Report 8621850-1 (Version None)
Quarter: 2012Q3

REPORT INFORMATION
  Report Type: 
  Country: None (occurrence: None)
  Receive Date: 20120822
  Receipt Date: 20120822
  Transmission Date: 20120928
  Serious: No
  Sender: FDA-Public Use
  Company Number: None

PATIENT
  Sex: Male
  Weight: 106.6 kg

DRUGS (1)
  1. CETUXIMAB  (ERBITUX) [Suspect]
     Dosage: 916 MG

REACTIONS (6)
  - NAUSEA [None]
  - CHILLS [None]
  - FLUSHING [None]
  - OXYGEN SATURATION DECREASED [None]
  - DYSPNOEA [None]
  - CHEST PAIN [None]
